FAERS Safety Report 7153148-5 (Version None)
Quarter: 2010Q4

REPORT INFORMATION
  Report Type: 
  Country: None (occurrence: None)
  Receive Date: 20101213
  Receipt Date: 20101207
  Transmission Date: 20110411
  Serious: Yes (Death)
  Sender: FDA-Public Use
  Company Number: IN-PFIZER INC-2010166604

PATIENT
  Age: 50 Year
  Sex: Female

DRUGS (2)
  1. ERAXIS [Suspect]
     Indication: SYSTEMIC CANDIDA
     Dosage: 200 MG, 1X/DAY
     Route: 042
     Dates: start: 20101126, end: 20101126
  2. ERAXIS [Suspect]
     Dosage: 100 MG, 1X/DAY
     Route: 042
     Dates: start: 20101127, end: 20101203

REACTIONS (1)
  - DEATH [None]
